FAERS Safety Report 10402218 (Version 1)
Quarter: 2014Q3

REPORT INFORMATION
  Report Type: Spontaneous
  Country: US (occurrence: None)
  Receive Date: 20140821
  Receipt Date: 20140821
  Transmission Date: 20150326
  Serious: No
  Sender: FDA-Public Use
  Company Number: None

PATIENT
  Age: 93 Year
  Sex: Female

DRUGS (1)
  1. CLONIDINE. [Suspect]
     Active Substance: CLONIDINE
     Indication: CARDIAC DISORDER
     Dosage: ONE PATCH PER WEEK WEEKLY APPLIED AS MEDICATED PATCH TO SKIN
     Route: 061
     Dates: start: 20140812

REACTIONS (4)
  - Device adhesion issue [None]
  - Product quality issue [None]
  - Product substitution issue [None]
  - Device issue [None]

NARRATIVE: CASE EVENT DATE: 20140816
